FAERS Safety Report 9342185 (Version 1)
Quarter: 2013Q2

REPORT INFORMATION
  Report Type: Spontaneous
  Country: BR (occurrence: BR)
  Receive Date: 20130611
  Receipt Date: 20130611
  Transmission Date: 20140414
  Serious: Yes (Hospitalization, Other)
  Sender: FDA-Public Use
  Company Number: BR-AMGEN-BRASP2013040932

PATIENT
  Age: 86 Year
  Sex: Female
  Weight: 75 kg

DRUGS (10)
  1. ENBREL [Suspect]
     Indication: RHEUMATOID ARTHRITIS
     Dosage: 50 MG, 1X/WEEK
     Route: 058
  2. ATENOLOL [Concomitant]
     Dosage: TWO TABLETS OF 25MG DAILY
  3. LOSARTAN [Concomitant]
     Dosage: TWO TABLETS OF 50MG DAILY
  4. CLOPIDOGREL [Concomitant]
     Dosage: ONE TABLET OF 75MG DAILY
  5. OMEPRAZOLE [Concomitant]
     Dosage: ONE TABLET OF 20MG DAILY
  6. PREDNISONE [Concomitant]
     Dosage: ONE TABLET OF 5MG DAILY
  7. INDAPEN                            /00026701/ [Concomitant]
     Dosage: ONE TABLET OF 1.5MG DAILY
  8. ALPRAZOLAM [Concomitant]
     Dosage: ONE TABLET OF 1MG DAILY
  9. SEROQUEL [Concomitant]
     Dosage: ONE TABLET OF 25MG DAILY
  10. MOTILIUM                           /00498201/ [Concomitant]
     Dosage: ONE TABLET OF 10MG DAILY

REACTIONS (2)
  - Femur fracture [Unknown]
  - Fall [Unknown]
